FAERS Safety Report 8973712 (Version 2)
Quarter: 2013Q1

REPORT INFORMATION
  Report Type: Spontaneous
  Country: AU (occurrence: AU)
  Receive Date: 20121218
  Receipt Date: 20130129
  Transmission Date: 20140127
  Serious: Yes (Other)
  Sender: FDA-Public Use
  Company Number: AU-ABBOTT-12P-008-1020530-00

PATIENT
  Age: 31 Year
  Sex: Female
  Weight: 60 kg

DRUGS (1)
  1. HUMIRA [Suspect]
     Indication: CROHN^S DISEASE
     Dates: start: 20121206

REACTIONS (4)
  - Pharyngeal oedema [Not Recovered/Not Resolved]
  - Buccal mucosal roughening [Not Recovered/Not Resolved]
  - Oral pain [Not Recovered/Not Resolved]
  - Oral pustule [Not Recovered/Not Resolved]
